FAERS Safety Report 9958621 (Version 2)
Quarter: 2014Q1

REPORT INFORMATION
  Report Type: Spontaneous
  Country: CA (occurrence: CA)
  Receive Date: 20140305
  Receipt Date: 20140320
  Transmission Date: 20141002
  Serious: Yes (Hospitalization, Other)
  Sender: FDA-Public Use
  Company Number: CA-AMGEN-CANSP2014015275

PATIENT
  Age: 63 Year
  Sex: Female
  Weight: 86.16 kg

DRUGS (8)
  1. ENBREL [Suspect]
     Indication: RHEUMATOID ARTHRITIS
     Dosage: 50 MG, QWK
     Route: 058
     Dates: start: 201011, end: 201402
  2. CYCLOBENZAPRINE [Concomitant]
     Dosage: UNK
  3. OMEPRAZOLE [Concomitant]
     Dosage: UNK
  4. MTX                                /00113801/ [Concomitant]
     Indication: RHEUMATOID ARTHRITIS
     Dosage: 20 MG, UNK
     Route: 058
  5. PLAQUENIL                          /00072602/ [Concomitant]
     Indication: RHEUMATOID ARTHRITIS
     Dosage: 200 MG, QD
     Dates: start: 1995
  6. SALAZOPYRINE [Concomitant]
     Indication: RHEUMATOID ARTHRITIS
     Dosage: 500 MG, BID
     Dates: start: 2010
  7. VOLTAREN                           /00372301/ [Concomitant]
     Indication: RHEUMATOID ARTHRITIS
     Dosage: 75 UNK, BID
     Route: 048
     Dates: start: 2009
  8. LAMALINE                           /01708901/ [Concomitant]
     Indication: RHEUMATOID ARTHRITIS
     Dosage: UNK
     Dates: start: 2001

REACTIONS (3)
  - Rectal adenocarcinoma [Not Recovered/Not Resolved]
  - Colon cancer [Not Recovered/Not Resolved]
  - Pulmonary mass [Not Recovered/Not Resolved]
